FAERS Safety Report 14775804 (Version 2)
Quarter: 2018Q2

REPORT INFORMATION
  Report Type: Spontaneous
  Country: IT (occurrence: IT)
  Receive Date: 20180418
  Receipt Date: 20180424
  Transmission Date: 20180711
  Serious: Yes (Other)
  Sender: FDA-Public Use
  Company Number: IT-ASTRAZENECA-2018SE49916

PATIENT
  Age: 63 Year
  Sex: Female

DRUGS (11)
  1. OLAPARIB. [Suspect]
     Active Substance: OLAPARIB
     Dosage: 400MG,TWICE
     Route: 048
     Dates: start: 20170606
  2. TAMOXIFEN [Suspect]
     Active Substance: TAMOXIFEN
     Route: 048
     Dates: start: 201501, end: 201603
  3. OLAPARIB. [Suspect]
     Active Substance: OLAPARIB
     Dosage: 400MG,TWICE
     Route: 048
     Dates: start: 20170704
  4. OLAPARIB. [Suspect]
     Active Substance: OLAPARIB
     Route: 048
     Dates: start: 20170801
  5. OLAPARIB. [Suspect]
     Active Substance: OLAPARIB
     Dosage: 200MG,TWICE
     Route: 048
     Dates: start: 20170911
  6. OLAPARIB. [Suspect]
     Active Substance: OLAPARIB
     Dosage: 200MG,TWICE
     Route: 048
     Dates: start: 20171207, end: 20171207
  7. OLAPARIB. [Suspect]
     Active Substance: OLAPARIB
     Dosage: 400MG,TWICE
     Route: 048
     Dates: start: 20170509
  8. OLAPARIB. [Suspect]
     Active Substance: OLAPARIB
     Dosage: 400MG, UNKNOWN
     Route: 048
     Dates: start: 20170411
  9. OLAPARIB. [Suspect]
     Active Substance: OLAPARIB
     Dosage: 200MG,TWICE
     Route: 048
     Dates: start: 20170809
  10. OLAPARIB. [Suspect]
     Active Substance: OLAPARIB
     Dosage: 200MG,TWICE
     Route: 048
     Dates: start: 20171009
  11. OLAPARIB. [Suspect]
     Active Substance: OLAPARIB
     Dosage: 200MG,TWICE
     Route: 048
     Dates: start: 20171106

REACTIONS (1)
  - Malignant neoplasm progression [Not Recovered/Not Resolved]

NARRATIVE: CASE EVENT DATE: 20170801
